FAERS Safety Report 7908965-8 (Version None)
Quarter: 2011Q4

REPORT INFORMATION
  Report Type: 
  Country: None (occurrence: None)
  Receive Date: 20111108
  Receipt Date: 20111025
  Transmission Date: 20120403
  Serious: Yes (Hospitalization)
  Sender: FDA-Public Use
  Company Number: FR-JNJFOC-20090306803

PATIENT
  Age: 68 Year
  Sex: Male
  Weight: 74 kg

DRUGS (3)
  1. DECITABINE [Suspect]
     Indication: CHRONIC MYELOMONOCYTIC LEUKAEMIA
     Dosage: 20 MG/M2, INTRAVENOUS 20 MG/M2, INTRAVENOUS ; 20 MG/M2, INTRAVENOUS
     Route: 042
     Dates: start: 20090126, end: 20090131
  2. DECITABINE [Suspect]
     Indication: CHRONIC MYELOMONOCYTIC LEUKAEMIA
     Dosage: 20 MG/M2, INTRAVENOUS 20 MG/M2, INTRAVENOUS ; 20 MG/M2, INTRAVENOUS
     Route: 042
     Dates: start: 20090223, end: 20090227
  3. DECITABINE [Suspect]
     Indication: CHRONIC MYELOMONOCYTIC LEUKAEMIA
     Dosage: 20 MG/M2, INTRAVENOUS 20 MG/M2, INTRAVENOUS ; 20 MG/M2, INTRAVENOUS
     Route: 042
     Dates: start: 20090323

REACTIONS (1)
  - ABSCESS INTESTINAL [None]
